FAERS Safety Report 7699989-7 (Version None)
Quarter: 2011Q3

REPORT INFORMATION
  Report Type: 
  Country: None (occurrence: None)
  Receive Date: 20110822
  Receipt Date: 20110812
  Transmission Date: 20111222
  Serious: Yes (Other)
  Sender: FDA-Public Use
  Company Number: DE-BAYER-2011-072007

PATIENT
  Sex: Female

DRUGS (1)
  1. MIRENA [Suspect]
     Indication: MENORRHAGIA
     Dosage: UNK
     Route: 015
     Dates: end: 20101221

REACTIONS (6)
  - SLEEP DISORDER [None]
  - BLOOD PRESSURE ABNORMAL [None]
  - VISUAL IMPAIRMENT [None]
  - THYROID DISORDER [None]
  - LIVER FUNCTION TEST ABNORMAL [None]
  - HEPATITIS [None]
